FAERS Safety Report 10239325 (Version 2)
Quarter: 2014Q2

REPORT INFORMATION
  Report Type: Report from Study
  Country: RO (occurrence: RO)
  Receive Date: 20140616
  Receipt Date: 20140620
  Transmission Date: 20141212
  Serious: Yes (Other)
  Sender: FDA-Public Use
  Company Number: RO-OTSUKA-US-2014-11319

PATIENT
  Age: 62 Year
  Sex: Male

DRUGS (2)
  1. BLINDED OPC-14597 [Suspect]
     Indication: BIPOLAR I DISORDER
     Dosage: UNK
     Route: 065
     Dates: start: 20131119, end: 20140312
  2. BLINDED OPC-14597 [Suspect]
     Dosage: 300 MG MILLIGRAM(S), UNK
     Route: 030
     Dates: start: 20140313, end: 20140509

REACTIONS (1)
  - Bipolar I disorder [Recovered/Resolved]
